FAERS Safety Report 9755239 (Version 1)
Quarter: 2013Q4

REPORT INFORMATION
  Report Type: Spontaneous
  Country: US (occurrence: US)
  Receive Date: 20131213
  Receipt Date: 20131213
  Transmission Date: 20140711
  Serious: No
  Sender: FDA-Public Use
  Company Number: US-GLAXOSMITHKLINE-A1014581A

PATIENT
  Age: 56 Year
  Sex: Male

DRUGS (10)
  1. NICODERM CQ CLEAR 21MG [Suspect]
     Indication: EX-TOBACCO USER
     Dates: start: 20130217
  2. ALBUTEROL [Concomitant]
  3. SPIRIVA [Concomitant]
  4. PREDNISONE [Concomitant]
  5. ARTHRITIS MEDICATION [Concomitant]
  6. ENBREL [Concomitant]
  7. IBUPROFEN [Concomitant]
  8. MELOXICAM [Concomitant]
  9. LYRICA [Concomitant]
  10. DIAZEPAM [Concomitant]

REACTIONS (10)
  - Application site irritation [Not Recovered/Not Resolved]
  - Application site hyperaesthesia [Not Recovered/Not Resolved]
  - Application site erythema [Not Recovered/Not Resolved]
  - Application site dryness [Not Recovered/Not Resolved]
  - Application site pain [Not Recovered/Not Resolved]
  - Application site pain [Not Recovered/Not Resolved]
  - Application site pruritus [Not Recovered/Not Resolved]
  - Application site erosion [Not Recovered/Not Resolved]
  - Application site papules [Not Recovered/Not Resolved]
  - Drug administration error [Unknown]
